FAERS Safety Report 8188048-5 (Version None)
Quarter: 2012Q1

REPORT INFORMATION
  Report Type: 
  Country: None (occurrence: None)
  Receive Date: 20120306
  Receipt Date: 20120229
  Transmission Date: 20120608
  Serious: No
  Sender: FDA-Public Use
  Company Number: US-PFIZER INC-2012055278

PATIENT
  Sex: Female
  Weight: 56.2 kg

DRUGS (4)
  1. PREMPRO [Suspect]
     Indication: MENOPAUSE
     Dosage: 0.45 MG DAILY
     Dates: start: 20120211, end: 20120228
  2. LAMICTAL [Concomitant]
     Indication: DEPRESSION
     Dosage: UNK, 2X/DAY
  3. PROZAC [Concomitant]
     Indication: DEPRESSION
     Dosage: 20 MG,DAILY
  4. PREMPRO [Suspect]
     Indication: MOOD SWINGS

REACTIONS (2)
  - NAUSEA [None]
  - HEADACHE [None]
